FAERS Safety Report 5704292-8 (Version None)
Quarter: 2008Q2

REPORT INFORMATION
  Report Type: 
  Country: None (occurrence: None)
  Receive Date: 20080409
  Receipt Date: 20080326
  Transmission Date: 20081010
  Serious: Yes (Other)
  Sender: FDA-Public Use
  Company Number: MPS1-1000043

PATIENT
  Age: 16 Year
  Sex: Male

DRUGS (1)
  1. ALDURAZYME [Suspect]
     Indication: MUCOPOLYSACCHARIDOSIS I
     Dosage: 100 U/KG, QW, INTRAVENOUS
     Route: 042
     Dates: start: 20080305

REACTIONS (3)
  - BODY TEMPERATURE INCREASED [None]
  - DERMATITIS ALLERGIC [None]
  - HEART RATE INCREASED [None]
